APPROVED DRUG PRODUCT: ATARAX
Active Ingredient: HYDROXYZINE HYDROCHLORIDE
Strength: 100MG **Federal Register determination that product was not discontinued or withdrawn for safety or effectiveness reasons**
Dosage Form/Route: TABLET;ORAL
Application: N010392 | Product #005
Applicant: PFIZER INC
Approved: Approved Prior to Jan 1, 1982 | RLD: Yes | RS: No | Type: DISCN